FAERS Safety Report 24936052 (Version 1)
Quarter: 2025Q1

REPORT INFORMATION
  Report Type: Spontaneous
  Country: IT (occurrence: IT)
  Receive Date: 20250206
  Receipt Date: 20250206
  Transmission Date: 20250409
  Serious: Yes (Hospitalization, Other)
  Sender: GLAXOSMITHKLINE
  Company Number: IT-GSK-IT2025EME013070

PATIENT

DRUGS (2)
  1. NIRAPARIB [Suspect]
     Active Substance: NIRAPARIB
     Indication: Ovarian cancer
  2. NIRAPARIB [Suspect]
     Active Substance: NIRAPARIB
     Dates: start: 202411

REACTIONS (4)
  - Hospitalisation [Recovering/Resolving]
  - Pancytopenia [Recovering/Resolving]
  - Thrombocytopenia [Recovering/Resolving]
  - Mental disorder [Recovering/Resolving]
